FAERS Safety Report 13327191 (Version 1)
Quarter: 2017Q1

REPORT INFORMATION
  Report Type: Spontaneous
  Country: US (occurrence: US)
  Receive Date: 20170313
  Receipt Date: 20170313
  Transmission Date: 20170428
  Serious: No
  Sender: FDA-Public Use
  Company Number: US-JNJFOC-20161206885

PATIENT
  Age: 68 Year
  Sex: Female
  Weight: 56.7 kg

DRUGS (12)
  1. METHOTREXATE. [Concomitant]
     Active Substance: METHOTREXATE
     Indication: ALOPECIA TOTALIS
     Dosage: 2 MONTHS
     Route: 065
  2. FOLIC ACID. [Concomitant]
     Active Substance: FOLIC ACID
     Indication: ALOPECIA TOTALIS
     Dosage: 2 MONTHS
     Route: 065
  3. DUTASTERIDE. [Concomitant]
     Active Substance: DUTASTERIDE
     Indication: ALOPECIA TOTALIS
     Dosage: 6 MONTHS
     Route: 065
  4. RALOXIFENE. [Concomitant]
     Active Substance: RALOXIFENE
     Indication: OSTEOPENIA
     Route: 065
  5. TACROLIMUS. [Concomitant]
     Active Substance: TACROLIMUS
     Indication: ALOPECIA TOTALIS
     Dosage: 6 MONTHS
     Route: 061
  6. CORTICOSTEROIDS [Concomitant]
     Active Substance: CORTICOSTEROID NOS
     Indication: ALOPECIA TOTALIS
     Route: 065
  7. CLOBETASOL [Concomitant]
     Active Substance: CLOBETASOL
     Indication: ALOPECIA TOTALIS
     Dosage: 6 MONTHS
     Route: 061
  8. NALTREXONE [Concomitant]
     Active Substance: NALTREXONE
     Indication: ALOPECIA TOTALIS
     Dosage: 2 MONTHS
     Route: 065
  9. LEVOTHYROXINE. [Concomitant]
     Active Substance: LEVOTHYROXINE
     Indication: HYPOTHYROIDISM
     Dosage: YEARS
     Route: 065
  10. PLAQUENIL [Concomitant]
     Active Substance: HYDROXYCHLOROQUINE SULFATE
     Indication: ALOPECIA TOTALIS
     Dosage: 6 MONTHS
     Route: 065
  11. WOMENS ROGAINE UNSCENTED [Suspect]
     Active Substance: MINOXIDIL
     Indication: ALOPECIA
     Dosage: 1/2 CAPFUL
     Route: 061
  12. WOMENS ROGAINE UNSCENTED [Suspect]
     Active Substance: MINOXIDIL
     Route: 061

REACTIONS (2)
  - Hair growth abnormal [Not Recovered/Not Resolved]
  - Contraindicated product administered [Not Recovered/Not Resolved]
